FAERS Safety Report 4810182-5 (Version None)
Quarter: 2005Q4

REPORT INFORMATION
  Report Type: 
  Country: None (occurrence: None)
  Receive Date: 20051026
  Receipt Date: 20050708
  Transmission Date: 20060501
  Serious: Yes (Hospitalization, Disabling)
  Sender: FDA-Public Use
  Company Number: US-MERCK-0507USA01174

PATIENT
  Age: 64 Year
  Sex: Female
  Weight: 82 kg

DRUGS (9)
  1. VIOXX [Suspect]
     Indication: OSTEOARTHRITIS
     Route: 048
     Dates: start: 20030912, end: 20031012
  2. LISINOPRIL [Concomitant]
     Route: 065
  3. NORVASC [Concomitant]
     Route: 065
  4. ALLEGRA [Concomitant]
     Route: 065
  5. ENTEX LA (NEW FORMULA) [Concomitant]
     Route: 065
  6. RITALIN [Concomitant]
     Route: 065
  7. FOLIC ACID [Concomitant]
     Route: 065
  8. INSULIN [Concomitant]
     Route: 065
  9. ASPIRIN [Concomitant]
     Route: 065

REACTIONS (3)
  - BLOOD PRESSURE ABNORMAL [None]
  - CEREBROVASCULAR ACCIDENT [None]
  - CORONARY ARTERY DISEASE [None]
